FAERS Safety Report 4876949-2 (Version None)
Quarter: 2006Q1

REPORT INFORMATION
  Report Type: 
  Country: None (occurrence: None)
  Receive Date: 20060110
  Receipt Date: 20060103
  Transmission Date: 20060701
  Serious: Yes (Hospitalization)
  Sender: FDA-Public Use
  Company Number: 2006CG00003

PATIENT
  Age: 69 Year
  Sex: Female

DRUGS (4)
  1. MOPRAL [Suspect]
     Route: 048
     Dates: start: 20050527, end: 20050703
  2. PREVISCAN [Suspect]
     Route: 048
     Dates: start: 20050616, end: 20050704
  3. RIFADIN [Suspect]
     Route: 042
     Dates: start: 20050527, end: 20050705
  4. VANCOMYCIN [Suspect]
     Route: 042
     Dates: start: 20050527, end: 20050703

REACTIONS (4)
  - ALANINE AMINOTRANSFERASE INCREASED [None]
  - BLOOD ALKALINE PHOSPHATASE INCREASED [None]
  - DRUG RASH WITH EOSINOPHILIA AND SYSTEMIC SYMPTOMS [None]
  - SKIN TEST POSITIVE [None]
